FAERS Safety Report 10244872 (Version 1)
Quarter: 2014Q1

REPORT INFORMATION
  Report Type: Spontaneous
  Country: US (occurrence: None)
  Receive Date: 20140306
  Receipt Date: 20140306
  Transmission Date: 20141002
  Serious: Yes (Hospitalization, Other)
  Sender: FDA-Public Use
  Company Number: 163-21880-13083104

PATIENT
  Age: 84 Year
  Sex: Male
  Weight: 102 kg

DRUGS (26)
  1. REVLIMID (LENALIDOMIDE) (25 MILLIGRAM, CAPSULES) [Suspect]
     Indication: PLASMA CELL MYELOMA
     Dosage: 25 MG, 21 IN 28 D, PO
     Route: 048
     Dates: start: 20130726
  2. HYDROCODONE (HYDROCODONE) (UNKNOWN) [Concomitant]
  3. MULTIVITAMINS (MULTIVITAMINS) (UNKNOWN) [Concomitant]
  4. AZELASTINE HCL (AZELASTINE HYDROCHLORIDE) (UNKNOWN) [Concomitant]
  5. METOPROLOL SUCCINATE (METOPROLOL SUCCINATE) (UNKNOWN) [Concomitant]
  6. AMLODIPINE BESYLATE (AMLODIPINE BESILATE) (TABLETS) [Concomitant]
  7. LOSARTAN POTASSIUM (LOSARTAN POTASSIUM) (UNKNOWN) [Concomitant]
  8. METFORMIN HCL (METFORMIN HYDROCHLORIDE) (UNKNOWN) [Concomitant]
  9. TRIAMCINOLONE ACETONIDE (TRIAMCINOLONE ACETONIDE) (UNKNOWN) [Concomitant]
  10. ALBUTEROL (SALBUTAMOL) (UNKNOWN) [Concomitant]
  11. ZOMETA (ZOLEDRONIC ACID) (UNKNOWN) [Concomitant]
  12. ASPIRIN ADULT LOW DOSE STRENGTH (ACETYLSALICYLIC ACID) (UNKNOWN) [Concomitant]
  13. FISH OIL  (FISH OIL) (UNKNOWN) [Concomitant]
  14. VITAMIN B12 (CYANOCOBALAMIN) (UNKNOWN) [Concomitant]
  15. MAGNESIUM GLUCONATE (MAGNESIUM GLUCONATE) (UNKNOWN) [Concomitant]
  16. VITAMIN D (ERGOCALCIFEROL) (UNKNOWN) [Concomitant]
  17. CENTRUM SILVER ADULT 50 PLUS (CENTRUM SILVER ADULTS 50+) (UNKNOWN) [Concomitant]
  18. SIMVASTATIN (SIMVASTATIN) (UNKNOWN) [Concomitant]
  19. CALCIUM (CALCIUM) (UNKNOWN) [Concomitant]
  20. CYMBALTA [Concomitant]
  21. CIALIS (TADALAFIL) (TABLETS) [Concomitant]
  22. DEXAMETHASONE (DEXAMETHASONE) (TABLETS) [Concomitant]
  23. LISINOPRIL (LISINOPRIL) (TABLETS) [Concomitant]
  24. TRAMADOL - ACETAMINOPHEN (ULTRACET) (UNKNOWN) [Concomitant]
  25. ALPRAZOLAM (ALPRAZOLAM) (TABLETS) [Concomitant]
  26. KLOR-CON M20 (POTASSIUM CHLORIDE) (UNKNOWN) [Concomitant]

REACTIONS (6)
  - Full blood count decreased [None]
  - Dizziness [None]
  - Erythema [None]
  - Fatigue [None]
  - Constipation [None]
  - Pruritus [None]
